FAERS Safety Report 8475378-2 (Version None)
Quarter: 2012Q2

REPORT INFORMATION
  Report Type: 
  Country: None (occurrence: None)
  Receive Date: 20120628
  Receipt Date: 20120614
  Transmission Date: 20120825
  Serious: Yes (Hospitalization)
  Sender: FDA-Public Use
  Company Number: US-ELI_LILLY_AND_COMPANY-US201205005241

PATIENT
  Age: 67 Year
  Sex: Male

DRUGS (4)
  1. CYMBALTA [Suspect]
     Dosage: 30 MG, BID
     Dates: start: 20120201
  2. LIPITOR [Concomitant]
  3. LISINOPRIL [Concomitant]
  4. CYMBALTA [Suspect]
     Indication: DYSTONIA
     Dosage: 60 MG DAILY

REACTIONS (1)
  - INFECTION [None]
